FAERS Safety Report 20603730 (Version 1)
Quarter: 2022Q1

REPORT INFORMATION
  Report Type: Spontaneous
  Country: US (occurrence: None)
  Receive Date: 20220316
  Receipt Date: 20220316
  Transmission Date: 20220423
  Serious: No
  Sender: FDA-Public Use
  Company Number: None

PATIENT
  Age: 40 Year
  Sex: Male
  Weight: 155 kg

DRUGS (1)
  1. CASIRIVIMAB\IMDEVIMAB [Suspect]
     Active Substance: CASIRIVIMAB\IMDEVIMAB
     Indication: COVID-19
     Dosage: 600MG ONCE IV
     Route: 042
     Dates: start: 20211228, end: 20211228

REACTIONS (2)
  - Infusion related reaction [None]
  - Rash [None]

NARRATIVE: CASE EVENT DATE: 20210228
